FAERS Safety Report 23229439 (Version 1)
Quarter: 2023Q4

REPORT INFORMATION
  Report Type: Spontaneous
  Country: US (occurrence: US)
  Receive Date: 20231127
  Receipt Date: 20231127
  Transmission Date: 20240110
  Serious: Yes (Other)
  Sender: FDA-Public Use
  Company Number: US-BEH-2023165526

PATIENT
  Sex: Male

DRUGS (2)
  1. RIASTAP [Suspect]
     Active Substance: FIBRINOGEN HUMAN
     Indication: Factor I deficiency
     Route: 065
  2. RIASTAP [Suspect]
     Active Substance: FIBRINOGEN HUMAN
     Indication: Prophylaxis

REACTIONS (2)
  - Drug ineffective [Unknown]
  - Inhibiting antibodies positive [Unknown]
